FAERS Safety Report 22931199 (Version 4)
Quarter: 2024Q3

REPORT INFORMATION
  Report Type: Report from Study
  Country: IL (occurrence: IL)
  Receive Date: 20230911
  Receipt Date: 20240928
  Transmission Date: 20241016
  Serious: Yes (Hospitalization)
  Sender: ABBVIE
  Company Number: IL-ABBVIE-4145165

PATIENT
  Age: 74 Year
  Sex: Female
  Weight: 64 kg

DRUGS (25)
  1. VENETOCLAX [Suspect]
     Active Substance: VENETOCLAX
     Indication: Chronic lymphocytic leukaemia
     Dosage: 20 MILLIGRAM, RAMP-UP
     Route: 048
     Dates: start: 20220207, end: 20220213
  2. VENETOCLAX [Suspect]
     Active Substance: VENETOCLAX
     Indication: Chronic lymphocytic leukaemia
     Dosage: 400 MILLIGRAM, RAMP-UP ;MODIFICATION TO THE DAILY DOSE DUE TO ADVERSE EVENT
     Route: 048
     Dates: start: 20220315, end: 20220910
  3. VENETOCLAX [Suspect]
     Active Substance: VENETOCLAX
     Indication: Chronic lymphocytic leukaemia
     Dosage: 50 MILLIGRAM, RAMP-UP
     Route: 048
     Dates: start: 20220214, end: 20220220
  4. VENETOCLAX [Suspect]
     Active Substance: VENETOCLAX
     Indication: Chronic lymphocytic leukaemia
     Dosage: 100 MILLIGRAM, RAMP-UP
     Route: 048
     Dates: start: 20220221, end: 20220227
  5. VENETOCLAX [Suspect]
     Active Substance: VENETOCLAX
     Indication: Chronic lymphocytic leukaemia
     Dosage: 300 MILLIGRAM, INTERRUPTION DUE TO ADVERSE EVENT
     Route: 048
     Dates: start: 20220911, end: 20230327
  6. VENETOCLAX [Suspect]
     Active Substance: VENETOCLAX
     Indication: Chronic lymphocytic leukaemia
     Dosage: 200 MILLIGRAM, RAMP-UP
     Route: 048
     Dates: start: 20220228, end: 20220314
  7. VENETOCLAX [Suspect]
     Active Substance: VENETOCLAX
     Indication: Chronic lymphocytic leukaemia
     Dosage: 0 MILLIGRAM
     Route: 048
     Dates: start: 20230328, end: 20230715
  8. VENETOCLAX [Suspect]
     Active Substance: VENETOCLAX
     Indication: Chronic lymphocytic leukaemia
     Dosage: 200 MILLIGRAM, DURATION TEXT: REASON FOR DISCO- TREATMENTS COMPLETION
     Route: 048
     Dates: start: 20230810, end: 20240228
  9. VENETOCLAX [Suspect]
     Active Substance: VENETOCLAX
     Indication: Chronic lymphocytic leukaemia
     Dosage: 300 MILLIGRAM; MODIFICATION TO THE DAILY DOSE DUE TO ADVERSE EVENT
     Route: 048
     Dates: start: 20230716, end: 20230809
  10. CALTRATE [Concomitant]
     Active Substance: CALCIUM CARBONATE
     Indication: Osteoporosis
     Route: 065
     Dates: start: 2019
  11. Fusid [Concomitant]
     Indication: Cardiac failure
     Route: 065
     Dates: start: 2020
  12. SERTRALINE HYDROCHLORIDE [Concomitant]
     Active Substance: SERTRALINE HYDROCHLORIDE
     Indication: Cognitive disorder
     Route: 065
     Dates: start: 20191113
  13. avilac [Concomitant]
     Indication: Prophylaxis
     Route: 065
     Dates: start: 2019
  14. ACETAMINOPHEN [Concomitant]
     Active Substance: ACETAMINOPHEN
     Indication: Premedication
     Dates: start: 20220221, end: 20220221
  15. VITAMIN D3 [Concomitant]
     Active Substance: CHOLECALCIFEROL
     Indication: Osteoporosis
     Dates: start: 2019
  16. PFIZER-BIONTECH COVID-19 VACCINE [Concomitant]
     Active Substance: TOZINAMERAN
     Indication: COVID-19 prophylaxis
     Dosage: TIME INTERVAL: TOTAL: 2ND DOSE -  ONE IN ONCE
     Route: 030
     Dates: start: 202102, end: 202102
  17. PFIZER-BIONTECH COVID-19 VACCINE [Concomitant]
     Active Substance: TOZINAMERAN
     Indication: COVID-19 prophylaxis
     Dosage: TIME INTERVAL: TOTAL: BOOSTER DOSE -  ONE IN ONCE
     Route: 030
     Dates: start: 20220524, end: 20220524
  18. PFIZER-BIONTECH COVID-19 VACCINE [Concomitant]
     Active Substance: TOZINAMERAN
     Indication: COVID-19 prophylaxis
     Dosage: TIME INTERVAL: TOTAL: 1ST DOSE -  ONE IN ONCE
     Route: 030
     Dates: start: 202012, end: 202012
  19. NEUPOGEN [Concomitant]
     Active Substance: FILGRASTIM
     Indication: Supportive care
     Route: 065
     Dates: start: 20220307
  20. HYDROCORTISONE [Concomitant]
     Active Substance: HYDROCORTISONE\HYDROCORTISONE ACETATE
     Indication: Premedication
     Dates: start: 20220221, end: 20220221
  21. ATENOLOL [Concomitant]
     Active Substance: ATENOLOL
     Indication: Hypertension
     Route: 065
     Dates: start: 20040111
  22. ELIQUIS [Concomitant]
     Active Substance: APIXABAN
     Indication: Thrombosis prophylaxis
     Route: 065
     Dates: start: 20201104
  23. RITUXIMAB [Suspect]
     Active Substance: RITUXIMAB
     Indication: Chronic lymphocytic leukaemia
     Dosage: FREQUENCY TEXT: CYCLE NUMBER 1
     Route: 065
     Dates: start: 20220221, end: 20220221
  24. PROMETHAZINE [Concomitant]
     Active Substance: PROMETHAZINE HYDROCHLORIDE
     Indication: Premedication
     Dates: start: 20220221, end: 20220221
  25. ALLOPURINOL [Concomitant]
     Active Substance: ALLOPURINOL
     Indication: Premedication
     Route: 065
     Dates: start: 20220207, end: 20220314

REACTIONS (8)
  - Hip arthroplasty [Recovered/Resolved]
  - Fatigue [Not Recovered/Not Resolved]
  - Neutrophil count decreased [Recovered/Resolved]
  - Platelet count decreased [Not Recovered/Not Resolved]
  - Platelet count decreased [Recovered/Resolved]
  - Platelet count decreased [Recovered/Resolved]
  - Decreased appetite [Not Recovered/Not Resolved]
  - Neutrophil count decreased [Recovered/Resolved]

NARRATIVE: CASE EVENT DATE: 20220307
